FAERS Safety Report 18218309 (Version 6)
Quarter: 2024Q1

REPORT INFORMATION
  Report Type: Spontaneous
  Country: US (occurrence: US)
  Receive Date: 20200901
  Receipt Date: 20240208
  Transmission Date: 20240410
  Serious: Yes (Other)
  Sender: FDA-Public Use
  Company Number: US-PFIZER INC-2020336013

PATIENT
  Age: 73 Year
  Sex: Male

DRUGS (1)
  1. BOSULIF [Suspect]
     Active Substance: BOSUTINIB MONOHYDRATE
     Indication: Chronic myeloid leukaemia
     Dosage: 200 MG, DAILY (100MG, 2 TABLETS DAILY)
     Route: 048

REACTIONS (2)
  - Diabetes mellitus [Unknown]
  - Chronic obstructive pulmonary disease [Unknown]
